FAERS Safety Report 5047202-1 (Version None)
Quarter: 2006Q3

REPORT INFORMATION
  Report Type: 
  Country: None (occurrence: None)
  Receive Date: 20060703
  Receipt Date: 20060619
  Transmission Date: 20061208
  Serious: Yes (Hospitalization, Other)
  Sender: FDA-Public Use
  Company Number: 2006063551

PATIENT
  Age: 58 Year
  Sex: Male
  Weight: 88.905 kg

DRUGS (6)
  1. BEXTRA [Suspect]
     Indication: BACK PAIN
     Dosage: 20 MG (20 MG, 1 IN 1 D)
     Dates: start: 20031101, end: 20040401
  2. PREVIDENT (SODIUM FLUORIDE) [Concomitant]
  3. LOTENSIN HCT (BENAZEPRIL HYDROCHLORIDE, HYDROCHLOROTHIAZIDE) [Concomitant]
  4. NORVASC [Concomitant]
  5. CRESTOR [Concomitant]
  6. ACIPHEX [Concomitant]

REACTIONS (8)
  - ARTERIOSCLEROSIS [None]
  - BASAL CELL CARCINOMA [None]
  - BLOOD CHOLESTEROL INCREASED [None]
  - DEEP VEIN THROMBOSIS [None]
  - ELECTROCARDIOGRAM ABNORMAL [None]
  - OEDEMA PERIPHERAL [None]
  - PAIN IN EXTREMITY [None]
  - VASCULAR INJURY [None]
